FAERS Safety Report 13295400 (Version 2)
Quarter: 2017Q2

REPORT INFORMATION
  Report Type: Spontaneous
  Country: US (occurrence: US)
  Receive Date: 20170303
  Receipt Date: 20170412
  Transmission Date: 20170830
  Serious: Yes (Hospitalization)
  Sender: FDA-Public Use
  Company Number: US-JNJFOC-20161224860

PATIENT
  Age: 28 Year
  Sex: Female

DRUGS (2)
  1. XARELTO [Suspect]
     Active Substance: RIVAROXABAN
     Indication: PULMONARY EMBOLISM
     Dosage: 15 MG, THEN 20 MG (1 TABLET 15 MG BID FOR 21 DAYS AND THEN 1 TABLET 20 MG DAILY).
     Route: 048
     Dates: start: 20160816, end: 20170105
  2. XARELTO [Suspect]
     Active Substance: RIVAROXABAN
     Indication: DEEP VEIN THROMBOSIS
     Dosage: 15 MG, THEN 20 MG (1 TABLET 15 MG BID FOR 21 DAYS AND THEN 1 TABLET 20 MG DAILY).
     Route: 048
     Dates: start: 20160816, end: 20170105

REACTIONS (2)
  - Rectal haemorrhage [Unknown]
  - Gastrointestinal haemorrhage [Unknown]

NARRATIVE: CASE EVENT DATE: 20160910
